FAERS Safety Report 15979190 (Version 1)
Quarter: 2019Q1

REPORT INFORMATION
  Report Type: Spontaneous
  Country: US (occurrence: US)
  Receive Date: 20190215
  Receipt Date: 20190215
  Transmission Date: 20190418
  Serious: Yes (Other)
  Sender: FDA-Public Use
  Company Number: None

PATIENT
  Age: 52 Year
  Sex: Female
  Weight: 87.75 kg

DRUGS (11)
  1. PHENTERMINE. [Concomitant]
     Active Substance: PHENTERMINE
  2. TRINTELLIX [Suspect]
     Active Substance: VORTIOXETINE HYDROBROMIDE
     Indication: ANXIETY
     Dosage: ?          QUANTITY:7 TABLET(S);?
     Route: 048
     Dates: start: 20190121, end: 20190208
  3. MUSENEX [Concomitant]
  4. HYDROCHLOROTHIAZIDE. [Concomitant]
     Active Substance: HYDROCHLOROTHIAZIDE
  5. ZYRTEC [Concomitant]
     Active Substance: CETIRIZINE HYDROCHLORIDE
  6. LAMICTAL [Concomitant]
     Active Substance: LAMOTRIGINE
  7. TOPAMAX [Concomitant]
     Active Substance: TOPIRAMATE
  8. PROAIR HFA [Concomitant]
     Active Substance: ALBUTEROL SULFATE
  9. HYDROCLOROTHIAZIDE 12.5 MG CP [Suspect]
     Active Substance: HYDROCHLOROTHIAZIDE
     Indication: BLOOD PRESSURE MEASUREMENT
     Dosage: ?          QUANTITY:90 CAPSULE(S);?
     Route: 048
  10. MICROZIDE [Concomitant]
     Active Substance: HYDROCHLOROTHIAZIDE
  11. AMITRIPTYLINE [Concomitant]
     Active Substance: AMITRIPTYLINE

REACTIONS (3)
  - Tremor [None]
  - Retching [None]
  - Nausea [None]

NARRATIVE: CASE EVENT DATE: 20190208
